FAERS Safety Report 8856674 (Version 1)
Quarter: 2012Q4

REPORT INFORMATION
  Report Type: 
  Country: US (occurrence: US)
  Receive Date: 20121023
  Receipt Date: 20121023
  Transmission Date: 20130627
  Serious: No
  Sender: FDA-Public Use
  Company Number: US-AMGEN-USASP2012056578

PATIENT
  Sex: Male
  Weight: 75.28 kg

DRUGS (11)
  1. ENBREL [Suspect]
     Indication: POLYMYOSITIS
     Dosage: UNK
     Route: 058
  2. ALLOPURINOL [Concomitant]
     Dosage: UNK
  3. FISH OIL [Concomitant]
     Dosage: UNK
  4. LANTUS [Concomitant]
     Dosage: UNK
  5. METFORMIN [Concomitant]
     Dosage: UNK
  6. METHOTREXATE [Concomitant]
     Dosage: UNK
  7. PRILOSEC                           /00661201/ [Concomitant]
     Dosage: UNK
  8. VITAMIN C                          /00008001/ [Concomitant]
     Dosage: UNK
  9. VITAMIN B [Concomitant]
     Dosage: UNK
  10. ACTHAR                             /00005501/ [Concomitant]
     Dosage: UNK
  11. MULTIVITAMINS, PLAIN [Concomitant]
     Dosage: UNK

REACTIONS (2)
  - Immune system disorder [Unknown]
  - Dysphagia [Unknown]
